FAERS Safety Report 23150845 (Version 1)
Quarter: 2023Q4

REPORT INFORMATION
  Report Type: Spontaneous
  Country: US (occurrence: US)
  Receive Date: 20231106
  Receipt Date: 20231106
  Transmission Date: 20240110
  Serious: No
  Sender: FDA-Public Use
  Company Number: US-BAUSCH-BL-2023-016295

PATIENT

DRUGS (5)
  1. PENTOXIFYLLINE [Suspect]
     Active Substance: PENTOXIFYLLINE
     Indication: Segmented hyalinising vasculitis
     Dosage: 400 TO 800 MG 3 TIMES DAILY
     Route: 065
  2. NIFEDIPINE [Suspect]
     Active Substance: NIFEDIPINE
     Indication: Segmented hyalinising vasculitis
     Dosage: 60 TO 90 MG DAILY
     Route: 065
  3. HYDROXYCHLOROQUINE [Suspect]
     Active Substance: HYDROXYCHLOROQUINE
     Indication: Segmented hyalinising vasculitis
     Dosage: 300 TO 400 MG (LESS THAN OR EQUAL TO 5 MG/KG) TOTAL DAILY DOSE
     Route: 065
  4. ASPIRIN [Suspect]
     Active Substance: ASPIRIN
     Indication: Segmented hyalinising vasculitis
     Dosage: 81 TO 325 MG DAILY
     Route: 065
  5. AMLODIPINE [Suspect]
     Active Substance: AMLODIPINE BESYLATE
     Indication: Segmented hyalinising vasculitis
     Dosage: 5 TO 10 MG DAILY
     Route: 065

REACTIONS (1)
  - Therapy partial responder [Unknown]
